FAERS Safety Report 5085400-1 (Version None)
Quarter: 2006Q3

REPORT INFORMATION
  Report Type: 
  Country: None (occurrence: None)
  Receive Date: 20060822
  Receipt Date: 20060608
  Transmission Date: 20061208
  Serious: Yes (Death, Hospitalization)
  Sender: FDA-Public Use
  Company Number: IT-BRISTOL-MYERS SQUIBB COMPANY-13412218

PATIENT
  Age: 67 Year
  Sex: Female

DRUGS (3)
  1. GLUCOPHAGE [Suspect]
     Indication: DIABETES MELLITUS
     Route: 048
     Dates: start: 20060101, end: 20060518
  2. GLIBOMET [Suspect]
     Indication: DIABETES MELLITUS
     Dosage: DOSAGE FORM = 400MG/5MG
     Route: 048
     Dates: start: 20060101, end: 20060518
  3. METACEN [Suspect]
     Indication: BACK PAIN
     Dates: start: 20060516, end: 20060518

REACTIONS (3)
  - DEATH [None]
  - GASTROENTERITIS [None]
  - RENAL FAILURE ACUTE [None]
